FAERS Safety Report 12626838 (Version 1)
Quarter: 2016Q3

REPORT INFORMATION
  Report Type: Spontaneous
  Country: TR (occurrence: TR)
  Receive Date: 20160805
  Receipt Date: 20160805
  Transmission Date: 20161109
  Serious: Yes (Other)
  Sender: FDA-Public Use
  Company Number: TR-JNJFOC-20160801731

PATIENT

DRUGS (1)
  1. INFLIXIMAB, RECOMBINANT [Suspect]
     Active Substance: INFLIXIMAB
     Indication: BEHCET^S SYNDROME
     Dosage: AT WEEKS 0, 2, AND 6, THEN ONCE EVERY 8 WEEKS.
     Route: 042

REACTIONS (4)
  - Pulmonary tuberculosis [Unknown]
  - Product use issue [Unknown]
  - Tuberculosis of central nervous system [Unknown]
  - Off label use [Unknown]
